FAERS Safety Report 21547589 (Version 1)
Quarter: 2022Q4

REPORT INFORMATION
  Report Type: Spontaneous
  Country: US (occurrence: None)
  Receive Date: 20221102
  Receipt Date: 20221102
  Transmission Date: 20230112
  Serious: Yes (Hospitalization)
  Sender: FDA-Public Use
  Company Number: None

PATIENT
  Sex: Female

DRUGS (1)
  1. IMATINIB MESYLATE [Suspect]
     Active Substance: IMATINIB MESYLATE
     Indication: Acute lymphocytic leukaemia
     Dosage: FREQUENCY : DAILY;?OTHER ROUTE : VIA G-TUBE;?
     Route: 050
     Dates: start: 20220705

REACTIONS (2)
  - Pancreatitis [None]
  - Hepatic enzyme increased [None]
